FAERS Safety Report 15556210 (Version 1)
Quarter: 2018Q4

REPORT INFORMATION
  Report Type: Spontaneous
  Country: US (occurrence: US)
  Receive Date: 20181026
  Receipt Date: 20181026
  Transmission Date: 20190205
  Serious: No
  Sender: FDA-Public Use
  Company Number: US-ALLERGAN-1817255US

PATIENT
  Age: 85 Year
  Sex: Male

DRUGS (3)
  1. ALPHAGAN P [Suspect]
     Active Substance: BRIMONIDINE TARTRATE
     Indication: GLAUCOMA
     Dosage: 2 GTT, UNK (BID-TID)
     Route: 047
  2. CARVEDILOL. [Concomitant]
     Active Substance: CARVEDILOL
     Indication: CARDIAC DISORDER
     Dosage: 3.125 MG, QD
     Route: 048
  3. LATANOPROST. [Concomitant]
     Active Substance: LATANOPROST
     Indication: INTRAOCULAR PRESSURE TEST
     Dosage: UNK UNK, QHS
     Route: 047

REACTIONS (2)
  - Vision blurred [Recovered/Resolved]
  - Inappropriate schedule of product administration [Unknown]
